FAERS Safety Report 4498577-3 (Version None)
Quarter: 2004Q4

REPORT INFORMATION
  Report Type: 
  Country: None (occurrence: None)
  Receive Date: 20041108
  Receipt Date: 20041025
  Transmission Date: 20050328
  Serious: Yes (Disabling, Other)
  Sender: FDA-Public Use
  Company Number: 2004241269US

PATIENT
  Age: 39 Year
  Sex: Female
  Weight: 46.7 kg

DRUGS (2)
  1. DEPO-MEDROL [Suspect]
     Indication: INTERVERTEBRAL DISC PROTRUSION
     Dosage: EPIDURAL
     Route: 008
     Dates: start: 20040401
  2. CORTICOSTEROIDS [Concomitant]

REACTIONS (14)
  - BURNING SENSATION [None]
  - DRUG INEFFECTIVE [None]
  - DYSURIA [None]
  - FEELING ABNORMAL [None]
  - FLUID RETENTION [None]
  - HEADACHE [None]
  - HYPOAESTHESIA [None]
  - MEDICATION ERROR [None]
  - MONOPLEGIA [None]
  - NERVE INJURY [None]
  - PAIN IN EXTREMITY [None]
  - SCAR [None]
  - SPINAL CORD DISORDER [None]
  - WEIGHT INCREASED [None]
